FAERS Safety Report 9971138 (Version 1)
Quarter: 2014Q1

REPORT INFORMATION
  Report Type: Report from Study
  Country: US (occurrence: US)
  Receive Date: 20140306
  Receipt Date: 20140306
  Transmission Date: 20141002
  Serious: No
  Sender: FDA-Public Use
  Company Number: US-ABBVIE-13P-163-1151958-00

PATIENT
  Sex: Male
  Weight: 101.7 kg

DRUGS (9)
  1. HUMIRA [Suspect]
     Indication: RHEUMATOID ARTHRITIS
     Dates: start: 2008, end: 2009
  2. HUMIRA [Suspect]
     Indication: PSORIASIS
  3. HUMIRA [Suspect]
     Dates: end: 201308
  4. HUMIRA [Suspect]
     Dates: start: 201308
  5. METHOTREXATE [Concomitant]
     Indication: RHEUMATOID ARTHRITIS
  6. METHOTREXATE [Concomitant]
     Indication: PSORIASIS
  7. FOLIC ACID [Concomitant]
     Indication: VITAMIN SUPPLEMENTATION
  8. COLCRYS [Concomitant]
     Indication: RHEUMATOID ARTHRITIS
  9. COLCRYS [Concomitant]
     Indication: PSORIASIS

REACTIONS (6)
  - Tenderness [Recovered/Resolved]
  - Tenderness [Not Recovered/Not Resolved]
  - Gout [Recovered/Resolved]
  - Drug ineffective [Recovered/Resolved]
  - Psoriasis [Recovered/Resolved]
  - Psoriasis [Not Recovered/Not Resolved]
